FAERS Safety Report 17091599 (Version 4)
Quarter: 2020Q1

REPORT INFORMATION
  Report Type: Spontaneous
  Country: DE (occurrence: DE)
  Receive Date: 20191129
  Receipt Date: 20200205
  Transmission Date: 20200409
  Serious: Yes (Hospitalization)
  Sender: FDA-Public Use
  Company Number: DE-FERRINGPH-2019FE07820

PATIENT
  Age: 35 Year
  Sex: Female
  Weight: 56 kg

DRUGS (9)
  1. FOLIO FORTE [Concomitant]
     Active Substance: FOLIC ACID\VITAMINS
     Dosage: 1 TIME DAILY
     Route: 065
     Dates: start: 20191030, end: 20191127
  2. OCTOSTIM [Suspect]
     Active Substance: DESMOPRESSIN ACETATE
     Indication: VON WILLEBRAND^S DISEASE
     Dosage: 150 UG, DAILY
     Route: 065
     Dates: start: 20191111, end: 20191118
  3. MENOPUR [Suspect]
     Active Substance: FOLLITROPIN\LUTEINIZING HORMONE
     Indication: CONTROLLED OVARIAN STIMULATION
     Dosage: UNK
     Route: 065
     Dates: start: 20191030, end: 20191109
  4. ORGALUTRAN [Concomitant]
     Active Substance: GANIRELIX ACETATE
     Dosage: UNK
     Dates: start: 20191104, end: 20191109
  5. CLEXANE [Concomitant]
     Active Substance: ENOXAPARIN SODIUM
     Dosage: 2000 IU
     Dates: start: 20191112, end: 20191127
  6. OVITRELLE [Concomitant]
     Active Substance: CHORIOGONADOTROPIN ALFA
     Indication: OVULATION INDUCTION
     Dosage: UNK
     Dates: start: 20191110
  7. ESTRADIOL. [Concomitant]
     Active Substance: ESTRADIOL
     Dosage: 2 MG, 3 TIMES DAILY
     Route: 048
     Dates: start: 20191112, end: 20191127
  8. FAMENITA [Concomitant]
     Active Substance: PROGESTERONE
     Indication: LUTEAL PHASE DEFICIENCY
     Dosage: 3 DF, 1 TIME DAILY
     Route: 067
     Dates: start: 20191112
  9. PUREGON                            /01348901/ [Concomitant]
     Active Substance: FOLLITROPIN
     Indication: CONTROLLED OVARIAN STIMULATION
     Dosage: UNK
     Dates: start: 20191030, end: 20191109

REACTIONS (5)
  - Hyponatraemia [Recovered/Resolved]
  - Syncope [Recovered/Resolved]
  - Craniocerebral injury [Recovered/Resolved]
  - Ovarian hyperstimulation syndrome [Recovered/Resolved]
  - Skin laceration [Recovered/Resolved]
